FAERS Safety Report 8166834-5 (Version None)
Quarter: 2012Q1

REPORT INFORMATION
  Report Type: 
  Country: None (occurrence: None)
  Receive Date: 20120227
  Receipt Date: 20120213
  Transmission Date: 20120608
  Serious: Yes (Hospitalization, Other)
  Sender: FDA-Public Use
  Company Number: US-ROCHE-1039932

PATIENT
  Sex: Female
  Weight: 139.6 kg

DRUGS (20)
  1. RITUXIMAB [Suspect]
     Route: 042
     Dates: start: 20110817, end: 20110817
  2. ABILIFY [Suspect]
     Route: 048
  3. CALCIUM [Concomitant]
  4. ZOLOFT [Concomitant]
  5. ACETAMINOPHEN [Concomitant]
     Dates: start: 20110817, end: 20110817
  6. RITUXIMAB [Suspect]
     Route: 042
     Dates: start: 20110824, end: 20110824
  7. TRAZODONE HCL [Concomitant]
  8. TRILEPTAL [Concomitant]
  9. ZYRTEC [Concomitant]
  10. VITAMIN D2 [Concomitant]
  11. MULTI-VITAMIN [Concomitant]
  12. DIPHENHYDRAMINE HCL [Concomitant]
     Dates: start: 20110817, end: 20110817
  13. RITUXIMAB [Suspect]
     Indication: B-CELL LYMPHOMA
     Route: 042
     Dates: start: 20110401
  14. RITUXIMAB [Suspect]
     Route: 042
     Dates: start: 20110708, end: 20110708
  15. ZEVALIN [Suspect]
     Route: 042
     Dates: start: 20110824, end: 20110824
  16. VITAMIN B6 [Concomitant]
  17. ZEVALIN [Suspect]
     Indication: B-CELL LYMPHOMA
     Route: 042
     Dates: start: 20110817, end: 20110817
  18. ABILIFY [Suspect]
     Indication: PRODUCT USED FOR UNKNOWN INDICATION
     Route: 048
  19. COUMADIN [Concomitant]
  20. FISH OIL [Concomitant]

REACTIONS (3)
  - PANCYTOPENIA [None]
  - APLASTIC ANAEMIA [None]
  - FEBRILE NEUTROPENIA [None]
